APPROVED DRUG PRODUCT: SIROLIMUS
Active Ingredient: SIROLIMUS
Strength: 1MG/ML
Dosage Form/Route: SOLUTION;ORAL
Application: A215116 | Product #001 | TE Code: AA
Applicant: RISING PHARMA HOLDINGS INC
Approved: Jul 15, 2025 | RLD: No | RS: No | Type: RX